FAERS Safety Report 7335247-8 (Version None)
Quarter: 2011Q1

REPORT INFORMATION
  Report Type: 
  Country: None (occurrence: None)
  Receive Date: 20110307
  Receipt Date: 20110304
  Transmission Date: 20110831
  Serious: Yes (Other)
  Sender: FDA-Public Use
  Company Number: US-PFIZER INC-2011048293

PATIENT
  Sex: Male
  Weight: 92.517 kg

DRUGS (6)
  1. NEURONTIN [Concomitant]
     Dosage: UNK
  2. PROTONIX [Concomitant]
     Dosage: UNK
  3. CHANTIX [Suspect]
     Indication: SMOKING CESSATION THERAPY
     Dosage: 0.5 MG, 2X/DAY
     Route: 048
     Dates: start: 20110301, end: 20110304
  4. LIBRIUM [Concomitant]
     Indication: ALCOHOLISM
     Dosage: UNK
  5. LISINOPRIL [Concomitant]
     Dosage: UNK
  6. SUCRALFATE [Concomitant]
     Dosage: UNK

REACTIONS (1)
  - MANIA [None]
